FAERS Safety Report 10012126 (Version 2)
Quarter: 2014Q2

REPORT INFORMATION
  Report Type: Spontaneous
  Country: US (occurrence: US)
  Receive Date: 20140314
  Receipt Date: 20140414
  Transmission Date: 20141212
  Serious: Yes (Hospitalization)
  Sender: FDA-Public Use
  Company Number: US-GLAXOSMITHKLINE-A1063555A

PATIENT
  Age: 58 Year
  Sex: Male

DRUGS (38)
  1. ADVAIR [Suspect]
     Indication: CHRONIC OBSTRUCTIVE PULMONARY DISEASE
     Dosage: 1PUFF TWICE PER DAY
     Route: 055
  2. AVODART [Suspect]
     Indication: BENIGN PROSTATIC HYPERPLASIA
     Dosage: .5MG PER DAY
     Route: 048
  3. NOVOLOG [Concomitant]
  4. ALPRAZOLAM [Concomitant]
  5. AMIODARONE [Concomitant]
  6. AMLODIPINE [Concomitant]
  7. ATORVASTATIN [Concomitant]
  8. BRILINTA [Concomitant]
  9. CARVEDILOL [Concomitant]
  10. LOMOTIL [Concomitant]
  11. DONEPEZIL [Concomitant]
  12. FENOFIBRATE [Concomitant]
  13. FUROSEMIDE [Concomitant]
  14. HYDROCODONE [Concomitant]
  15. LAMOTRIGINE [Concomitant]
  16. LEVOTHYROXINE [Concomitant]
  17. LISINOPRIL [Concomitant]
  18. LYRICA [Concomitant]
  19. MONTELUKAST [Concomitant]
  20. NEXIUM [Concomitant]
  21. NITROGLYCERIN [Concomitant]
  22. NITROSTAT [Concomitant]
  23. POLYETHYLENE GLYCOL [Concomitant]
  24. POTASSIUM CHLORIDE [Concomitant]
  25. PROMETHAZINE [Concomitant]
  26. QUETIAPINE [Concomitant]
  27. TAMSULOSIN [Concomitant]
  28. FLUTICASONE [Concomitant]
  29. VITAMIN D3 [Concomitant]
  30. PROVENTIL [Concomitant]
  31. LANTUS [Concomitant]
  32. FERROUS SULFATE [Concomitant]
  33. ASPIRIN [Concomitant]
  34. TYLENOL [Concomitant]
  35. METAMUCIL [Concomitant]
  36. GAS-X [Concomitant]
  37. ALKA SELTZER [Concomitant]
  38. MENTANX [Concomitant]

REACTIONS (5)
  - Cerebrovascular accident [Recovering/Resolving]
  - Cardiac failure congestive [Not Recovered/Not Resolved]
  - Disability [Not Recovered/Not Resolved]
  - Coronary arterial stent insertion [Unknown]
  - Treatment noncompliance [Unknown]
